FAERS Safety Report 19668762 (Version 1)
Quarter: 2021Q3

REPORT INFORMATION
  Report Type: Spontaneous
  Country: ES (occurrence: ES)
  Receive Date: 20210806
  Receipt Date: 20210806
  Transmission Date: 20211014
  Serious: Yes (Life-Threatening)
  Sender: FDA-Public Use
  Company Number: ES-009507513-2107ESP008847

PATIENT
  Age: 71 Year
  Sex: Female

DRUGS (7)
  1. ROCURONIUM BROMIDE. [Interacting]
     Active Substance: ROCURONIUM BROMIDE
     Indication: VARICOSE VEIN OPERATION
  2. SUGAMMADEX SODIUM [Suspect]
     Active Substance: SUGAMMADEX SODIUM
     Indication: NEUROMUSCULAR BLOCKADE REVERSAL
  3. PROPOFOL. [Concomitant]
     Active Substance: PROPOFOL
     Indication: VARICOSE VEIN OPERATION
  4. DEXKETOPROFEN [Concomitant]
     Active Substance: DEXKETOPROFEN
     Indication: ANALGESIC THERAPY
  5. FENTANYL. [Concomitant]
     Active Substance: FENTANYL
     Indication: VARICOSE VEIN OPERATION
  6. LIDOCAINE. [Concomitant]
     Active Substance: LIDOCAINE
     Indication: VARICOSE VEIN OPERATION
  7. ACETAMINOPHEN. [Concomitant]
     Active Substance: ACETAMINOPHEN
     Indication: ANALGESIC THERAPY

REACTIONS (2)
  - Drug interaction [Unknown]
  - Anaphylactic shock [Recovered/Resolved]
